FAERS Safety Report 7171560-5 (Version None)
Quarter: 2010Q4

REPORT INFORMATION
  Report Type: 
  Country: None (occurrence: None)
  Receive Date: 20101217
  Receipt Date: 20101206
  Transmission Date: 20110411
  Serious: Yes (Other)
  Sender: FDA-Public Use
  Company Number: JP-AMGEN-QUU444070

PATIENT

DRUGS (2)
  1. ENBREL [Suspect]
     Indication: RHEUMATOID ARTHRITIS
     Dosage: UNK UNK, UNK
  2. ENBREL [Suspect]
     Dosage: UNSPECIFIED

REACTIONS (2)
  - LUPUS-LIKE SYNDROME [None]
  - RHEUMATOID ARTHRITIS [None]
